FAERS Safety Report 5778319-1 (Version None)
Quarter: 2008Q2

REPORT INFORMATION
  Report Type: 
  Country: None (occurrence: None)
  Receive Date: 20080619
  Receipt Date: 20080611
  Transmission Date: 20081010
  Serious: No
  Sender: FDA-Public Use
  Company Number: ZA-ROCHE-491531

PATIENT
  Sex: Female
  Weight: 3.5 kg

DRUGS (3)
  1. ISOTRETINOIN [Suspect]
     Dosage: FREQUENCY REPORTED AS DAILY.
     Dates: start: 20070225, end: 20070402
  2. MICROGYNON [Concomitant]
     Indication: CONTRACEPTION
     Dosage: FORM: PILL
  3. MICROGYNON [Concomitant]
     Dosage: FORM: PILL

REACTIONS (2)
  - NO ADVERSE EVENT [None]
  - NORMAL NEWBORN [None]
